FAERS Safety Report 22279415 (Version 1)
Quarter: 2023Q2

REPORT INFORMATION
  Report Type: Report from Study
  Country: US (occurrence: US)
  Receive Date: 20230503
  Receipt Date: 20230503
  Transmission Date: 20230721
  Serious: Yes (Other)
  Sender: FDA-Public Use
  Company Number: US-UCBSA-2023022538

PATIENT
  Age: 5 Year
  Sex: Male
  Weight: 22.28 kg

DRUGS (1)
  1. FINTEPLA [Suspect]
     Active Substance: FENFLURAMINE
     Indication: Product used for unknown indication
     Dosage: 6.6 MILLIGRAM, ONCE DAILY (QD)
     Dates: start: 20221215

REACTIONS (1)
  - Left ventricular hypertrophy [Unknown]

NARRATIVE: CASE EVENT DATE: 20230403
